FAERS Safety Report 7419980-5 (Version None)
Quarter: 2011Q2

REPORT INFORMATION
  Report Type: 
  Country: None (occurrence: None)
  Receive Date: 20110418
  Receipt Date: 20110406
  Transmission Date: 20111010
  Serious: No
  Sender: FDA-Public Use
  Company Number: US-BIOGENIDEC-2010BI016179

PATIENT
  Age: 46 Year
  Sex: Female

DRUGS (2)
  1. TYSABRI [Suspect]
     Indication: MULTIPLE SCLEROSIS
     Route: 042
     Dates: start: 20100326
  2. PRISTIQ [Concomitant]
     Indication: DEPRESSION

REACTIONS (6)
  - HEADACHE [None]
  - PAIN [None]
  - VISION BLURRED [None]
  - EYE IRRITATION [None]
  - ASTHENIA [None]
  - FATIGUE [None]
